FAERS Safety Report 7042868-9 (Version None)
Quarter: 2010Q4

REPORT INFORMATION
  Report Type: 
  Country: None (occurrence: None)
  Receive Date: 20101013
  Receipt Date: 20100414
  Transmission Date: 20110411
  Serious: No
  Sender: FDA-Public Use
  Company Number: US-ASTRAZENECA-2010SE07492

PATIENT
  Sex: Male

DRUGS (2)
  1. SYMBICORT [Suspect]
     Dosage: 80/4.5 UG ONE PUFF TWICE A DAY
     Route: 055
  2. SYMBICORT [Suspect]
     Dosage: 80/4.5 UG TWO PUFFS TWICE A DAY
     Route: 055
     Dates: start: 20100101

REACTIONS (1)
  - DYSPNOEA [None]
